FAERS Safety Report 8546921-X (Version None)
Quarter: 2012Q3

REPORT INFORMATION
  Report Type: 
  Country: None (occurrence: None)
  Receive Date: 20120727
  Receipt Date: 20120119
  Transmission Date: 20120928
  Serious: No
  Sender: FDA-Public Use
  Company Number: US-ASTRAZENECA-2012SE03885

PATIENT
  Age: 54 Year
  Sex: Female

DRUGS (1)
  1. SEROQUEL XR [Suspect]
     Indication: BIPOLAR DISORDER
     Route: 048

REACTIONS (5)
  - FEELING JITTERY [None]
  - INSOMNIA [None]
  - OFF LABEL USE [None]
  - THERAPY CESSATION [None]
  - ACTIVITIES OF DAILY LIVING IMPAIRED [None]
